FAERS Safety Report 6398652-2 (Version None)
Quarter: 2009Q4

REPORT INFORMATION
  Report Type: 
  Country: None (occurrence: None)
  Receive Date: 20091013
  Receipt Date: 20090928
  Transmission Date: 20100525
  Serious: Yes (Hospitalization, Disabling, Other)
  Sender: FDA-Public Use
  Company Number: US-MERCK-0906USA01733

PATIENT
  Age: 91 Year
  Sex: Female

DRUGS (11)
  1. FOSAMAX [Suspect]
     Indication: OSTEOPOROSIS
     Route: 048
     Dates: start: 20001101, end: 20080601
  2. ESTROPIPATE [Concomitant]
     Indication: HORMONE THERAPY
     Route: 065
     Dates: start: 19890101
  3. PERCOCET [Concomitant]
     Indication: PAIN
     Route: 065
  4. PERCOCET [Concomitant]
     Indication: SPINAL COLUMN STENOSIS
     Route: 065
  5. PROPOXYPHENE [Concomitant]
     Indication: PAIN
     Route: 065
  6. PROPOXYPHENE [Concomitant]
     Indication: SPINAL COLUMN STENOSIS
     Route: 065
  7. TUMS [Concomitant]
     Indication: MINERAL SUPPLEMENTATION
     Route: 065
  8. FUROSEMIDE [Concomitant]
     Route: 065
  9. SPIRONOLACTONE [Concomitant]
     Route: 065
  10. FLAREX [Concomitant]
     Route: 065
  11. VITAMINS (UNSPECIFIED) [Concomitant]
     Route: 065

REACTIONS (40)
  - ABSCESS [None]
  - ADVERSE DRUG REACTION [None]
  - BURNING SENSATION [None]
  - CARDIAC FAILURE CONGESTIVE [None]
  - COLONIC POLYP [None]
  - CONDUCTIVE DEAFNESS [None]
  - CONFUSIONAL STATE [None]
  - DEEP VEIN THROMBOSIS [None]
  - DENTAL CARIES [None]
  - DIZZINESS [None]
  - DYSPHAGIA [None]
  - DYSPNOEA [None]
  - EMOTIONAL DISTRESS [None]
  - EXOSTOSIS [None]
  - FISTULA DISCHARGE [None]
  - GINGIVAL BLEEDING [None]
  - GINGIVAL INFECTION [None]
  - GINGIVAL PAIN [None]
  - HYPERTENSION [None]
  - HYPOAESTHESIA ORAL [None]
  - HYPONATRAEMIA [None]
  - IMPAIRED HEALING [None]
  - LIP AND/OR ORAL CAVITY CANCER [None]
  - OEDEMA PERIPHERAL [None]
  - ORAL HERPES [None]
  - ORAL INFECTION [None]
  - ORAL TORUS [None]
  - ORTHOSTATIC HYPOTENSION [None]
  - OSTEOMYELITIS [None]
  - OSTEONECROSIS [None]
  - PAIN IN JAW [None]
  - PARAESTHESIA [None]
  - PERIODONTAL DISEASE [None]
  - SEBORRHOEIC KERATOSIS [None]
  - STOMATITIS [None]
  - TOOTH FRACTURE [None]
  - TOOTHACHE [None]
  - TRISMUS [None]
  - VERTIGO POSITIONAL [None]
  - WEIGHT INCREASED [None]
